FAERS Safety Report 17818848 (Version 2)
Quarter: 2020Q2

REPORT INFORMATION
  Report Type: Spontaneous
  Country: US (occurrence: US)
  Receive Date: 20200522
  Receipt Date: 20200618
  Transmission Date: 20200714
  Serious: Yes (Death, Hospitalization)
  Sender: FDA-Public Use
  Company Number: US-SEATTLE GENETICS-2020SGN02205

PATIENT
  Age: 50 Year
  Sex: Female

DRUGS (1)
  1. TUKYSA [Suspect]
     Active Substance: TUCATINIB
     Indication: BREAST CANCER FEMALE
     Dosage: UNK UNK, BID
     Route: 048

REACTIONS (2)
  - Death [Fatal]
  - Cerebral disorder [Unknown]

NARRATIVE: CASE EVENT DATE: 20200613
